FAERS Safety Report 23477176 (Version 1)
Quarter: 2024Q1

REPORT INFORMATION
  Report Type: Report from Study
  Country: US (occurrence: US)
  Receive Date: 20240204
  Receipt Date: 20240204
  Transmission Date: 20240410
  Serious: No
  Sender: FDA-Public Use
  Company Number: US-EXELIXIS-CABO-23065302

PATIENT
  Age: 73 Year
  Sex: Female

DRUGS (2)
  1. CABOMETYX [Suspect]
     Active Substance: CABOZANTINIB S-MALATE
     Indication: Thyroid cancer
     Dosage: 20 MG
     Route: 048
     Dates: start: 202207
  2. CABOMETYX [Suspect]
     Active Substance: CABOZANTINIB S-MALATE
     Indication: Metastases to central nervous system
     Dosage: 20MG: TAKE 1 TABLET BY MOUTH DAILY 3 DAYS EACH WEEK AND 40MG: TAKE 1 TABLET BY MOUTH DAILY FOR 4 DAY
     Route: 048
     Dates: start: 202209

REACTIONS (2)
  - Colitis [Unknown]
  - Inappropriate schedule of product administration [Unknown]

NARRATIVE: CASE EVENT DATE: 20220901
